FAERS Safety Report 10952370 (Version 1)
Quarter: 2015Q1

REPORT INFORMATION
  Report Type: Spontaneous
  Country: US (occurrence: None)
  Receive Date: 20150323
  Receipt Date: 20150323
  Transmission Date: 20150721
  Serious: No
  Sender: FDA-Public Use
  Company Number: VIT-2014-02662

PATIENT
  Age: 72 Year
  Sex: Female
  Weight: 80 kg

DRUGS (15)
  1. COLECALCIFEROL [Concomitant]
     Active Substance: CHOLECALCIFEROL
  2. CALCIUM ACETATE (CAPSULE) [Concomitant]
  3. HYDROCODONE-ACETAMINOPHEN (PARACETAMOL, HYDROCODONE) [Concomitant]
  4. METOPROLOL TARTRATE. [Concomitant]
     Active Substance: METOPROLOL TARTRATE
  5. HEPARIN [Concomitant]
     Active Substance: HEPARIN SODIUM
  6. VELPHORO [Suspect]
     Active Substance: FERRIC OXYHYDROXIDE
     Indication: HYPERPHOSPHATAEMIA
     Dosage: 3 IN 1 D, ORAL
     Route: 048
  7. CRESTOR (ROSUVASTATIN CALCIUM, ROSUVASTATIN) [Concomitant]
  8. MULTAQ (DRONEDARONE HYDROCHLORIDE, DRONEDARONE) [Concomitant]
  9. NEPHROCAPS (ASCORBIC ACIDE, B COMPLEX - VITAMIN C - FOLIC ACID) [Concomitant]
  10. TEMAZEPAM. [Concomitant]
     Active Substance: TEMAZEPAM
  11. ALPRAZOLAM. [Concomitant]
     Active Substance: ALPRAZOLAM
  12. CALCITRIOL (CAPSULE) [Concomitant]
  13. EPOGEN [Concomitant]
     Active Substance: ERYTHROPOIETIN
  14. GENTAMICIN (CREAM) [Concomitant]
  15. SENSIPAR (CINACALCET HYDROCHLORIDE, CINACALCET) [Concomitant]

REACTIONS (2)
  - Chromaturia [None]
  - Urinary tract infection [None]

NARRATIVE: CASE EVENT DATE: 20141212
